FAERS Safety Report 9240957 (Version 1)
Quarter: 2013Q2

REPORT INFORMATION
  Report Type: Spontaneous
  Country: US (occurrence: US)
  Receive Date: 20130418
  Receipt Date: 20130418
  Transmission Date: 20140414
  Serious: Yes (Hospitalization)
  Sender: FDA-Public Use
  Company Number: US-SANOFI-AVENTIS-2012SA074214

PATIENT
  Age: 75 Year
  Sex: Male
  Weight: 67.5 kg

DRUGS (5)
  1. LOVENOX [Suspect]
     Indication: THROMBOSIS
     Route: 058
     Dates: start: 20120921, end: 20120922
  2. PLAVIX [Suspect]
     Indication: CORONARY ARTERY DISEASE
     Route: 048
  3. ASPIRIN [Suspect]
     Indication: CORONARY ARTERY DISEASE
     Route: 065
  4. INVESTIGATIONAL DRUG [Concomitant]
     Indication: PROSTATE CANCER METASTATIC
     Route: 065
     Dates: start: 20120607, end: 20120922
  5. PREDNISONE [Concomitant]
     Indication: PROSTATE CANCER METASTATIC
     Route: 048
     Dates: start: 20120607, end: 20120922

REACTIONS (1)
  - Haematuria [Recovered/Resolved]
